FAERS Safety Report 19814401 (Version 1)
Quarter: 2021Q3

REPORT INFORMATION
  Report Type: Report from Study
  Country: DK (occurrence: DK)
  Receive Date: 20210909
  Receipt Date: 20210909
  Transmission Date: 20211014
  Serious: Yes (Life-Threatening, Hospitalization)
  Sender: FDA-Public Use
  Company Number: DK-TEVA-2021-DK-1950000

PATIENT
  Age: 63 Year
  Sex: Female

DRUGS (8)
  1. PROPOFOL. [Suspect]
     Active Substance: PROPOFOL
     Indication: SEDATIVE THERAPY
  2. FENTANYL. [Suspect]
     Active Substance: FENTANYL
     Indication: SEDATIVE THERAPY
  3. REMIFENTANIL [Suspect]
     Active Substance: REMIFENTANIL
     Indication: VENTRICULAR ARRHYTHMIA
     Dosage: FOR 5 DAYS
     Route: 065
  4. PROPOFOL. [Suspect]
     Active Substance: PROPOFOL
     Indication: VENTRICULAR ARRHYTHMIA
     Dosage: FOR 5 DAYS
     Route: 041
  5. MAGNESIUM SULPHATE [Suspect]
     Active Substance: MAGNESIUM SULFATE
     Indication: VENTRICULAR ARRHYTHMIA
     Route: 065
  6. METOPROLOL. [Suspect]
     Active Substance: METOPROLOL
     Indication: VENTRICULAR ARRHYTHMIA
     Route: 065
  7. FENTANYL. [Suspect]
     Active Substance: FENTANYL
     Indication: VENTRICULAR ARRHYTHMIA
     Dosage: FOR 5 DAYS
     Route: 041
  8. REMIFENTANIL [Suspect]
     Active Substance: REMIFENTANIL
     Indication: SEDATIVE THERAPY

REACTIONS (2)
  - Hypotension [Unknown]
  - Drug ineffective [Unknown]
